FAERS Safety Report 16751985 (Version 8)
Quarter: 2020Q4

REPORT INFORMATION
  Report Type: Report from Study
  Country: DE (occurrence: DE)
  Receive Date: 20190828
  Receipt Date: 20201127
  Transmission Date: 20210113
  Serious: Yes (Hospitalization, Other)
  Sender: FDA-Public Use
  Company Number: PHHY2019DE073814

PATIENT
  Age: 60 Year
  Sex: Female
  Weight: 88 kg

DRUGS (3)
  1. COSENTYX [Suspect]
     Active Substance: SECUKINUMAB
     Dosage: 300 MG, Q4W
     Route: 058
     Dates: start: 20170112
  2. METHOTREXATE. [Concomitant]
     Active Substance: METHOTREXATE
     Indication: PRODUCT USED FOR UNKNOWN INDICATION
     Dosage: 22.5 MG, UNKNOWN
     Route: 065
     Dates: start: 20070316
  3. COSENTYX [Suspect]
     Active Substance: SECUKINUMAB
     Indication: PSORIATIC ARTHROPATHY
     Dosage: 300 MG, Q4W
     Route: 058
     Dates: start: 20161117, end: 20170111

REACTIONS (11)
  - Uterine polyp [Recovered/Resolved]
  - Microvascular coronary artery disease [Recovering/Resolving]
  - Cataract [Recovered/Resolved]
  - Uterine leiomyoma [Recovered/Resolved]
  - Coronary artery disease [Recovered/Resolved]
  - Basal cell carcinoma [Recovered/Resolved]
  - Angina pectoris [Unknown]
  - Impaired healing [Recovering/Resolving]
  - Arrhythmia [Recovered/Resolved]
  - Cataract [Recovered/Resolved]
  - Klebsiella infection [Recovered/Resolved]

NARRATIVE: CASE EVENT DATE: 20181027
